FAERS Safety Report 4976944-9 (Version None)
Quarter: 2006Q2

REPORT INFORMATION
  Report Type: 
  Country: None (occurrence: None)
  Receive Date: 20060413
  Receipt Date: 20060401
  Transmission Date: 20061013
  Serious: Yes (Hospitalization)
  Sender: FDA-Public Use
  Company Number: 2006PV011248

PATIENT
  Age: 68 Year
  Sex: Female

DRUGS (6)
  1. BYETTA [Suspect]
     Indication: DIABETES MELLITUS NON-INSULIN-DEPENDENT
     Dosage: SEE IMAGE
     Route: 058
     Dates: start: 20051201, end: 20060201
  2. BYETTA [Suspect]
     Indication: DIABETES MELLITUS NON-INSULIN-DEPENDENT
     Dosage: SEE IMAGE
     Route: 058
     Dates: start: 20060201
  3. AMARYL [Concomitant]
  4. GLUCOPHAGE [Concomitant]
  5. LOTENSIN HCT [Concomitant]
  6. DETROL [Concomitant]

REACTIONS (9)
  - CONDITION AGGRAVATED [None]
  - DIABETES MELLITUS INADEQUATE CONTROL [None]
  - DIZZINESS [None]
  - FAMILY STRESS [None]
  - HYPERTENSION [None]
  - INSOMNIA [None]
  - POLYURIA [None]
  - SYNCOPE [None]
  - TREATMENT NONCOMPLIANCE [None]
